FAERS Safety Report 6780819-2 (Version None)
Quarter: 2010Q2

REPORT INFORMATION
  Report Type: 
  Country: None (occurrence: None)
  Receive Date: 20100621
  Receipt Date: 20100603
  Transmission Date: 20101027
  Serious: Yes (Hospitalization, Other)
  Sender: FDA-Public Use
  Company Number: US-BAYER-201019674NA

PATIENT
  Age: 28 Year
  Sex: Female
  Weight: 68 kg

DRUGS (6)
  1. YAZ [Suspect]
     Indication: CONTRACEPTION
     Route: 048
     Dates: start: 20010101, end: 20080301
  2. ZOLOFT [Concomitant]
  3. LEVAQUIN [Concomitant]
  4. FLAGYL [Concomitant]
  5. PEPCID [Concomitant]
  6. LORTAB [Concomitant]

REACTIONS (6)
  - ABDOMINAL PAIN [None]
  - COLITIS ISCHAEMIC [None]
  - DIARRHOEA [None]
  - RECTAL HAEMORRHAGE [None]
  - THROMBOPHLEBITIS SUPERFICIAL [None]
  - VOMITING [None]
